FAERS Safety Report 21595691 (Version 2)
Quarter: 2022Q4

REPORT INFORMATION
  Report Type: Spontaneous
  Country: TW (occurrence: TW)
  Receive Date: 20221115
  Receipt Date: 20221202
  Transmission Date: 20230113
  Serious: Yes (Other)
  Sender: FDA-Public Use
  Company Number: TW-TAKEDA-2022TUS084369

PATIENT
  Age: 57 Year
  Sex: Female

DRUGS (3)
  1. ALUNBRIG [Suspect]
     Active Substance: BRIGATINIB
     Indication: Adenocarcinoma
     Dosage: 90 MILLIGRAM
     Route: 065
     Dates: start: 20220707
  2. ALUNBRIG [Suspect]
     Active Substance: BRIGATINIB
     Indication: Lung adenocarcinoma
     Dosage: 180 MILLIGRAM
     Route: 065
     Dates: start: 20220714
  3. ALUNBRIG [Suspect]
     Active Substance: BRIGATINIB
     Dosage: 90 MILLIGRAM, TID
     Route: 065

REACTIONS (4)
  - Hepatitis [Unknown]
  - Wound complication [Unknown]
  - Dermatitis [Unknown]
  - Accidental overdose [Unknown]
